FAERS Safety Report 5922574-1 (Version None)
Quarter: 2008Q3

REPORT INFORMATION
  Report Type: 
  Country: None (occurrence: None)
  Receive Date: 20080926
  Receipt Date: 20080923
  Transmission Date: 20090109
  Serious: Yes (Hospitalization)
  Sender: FDA-Public Use
  Company Number: 200814080

PATIENT
  Age: 46 Year
  Sex: Female
  Weight: 104.3273 kg

DRUGS (1)
  1. ZEMAIRA [Suspect]
     Indication: ALPHA-1 ANTI-TRYPSIN DEFICIENCY
     Dosage: 6273 MG Q1W IV
     Route: 042
     Dates: start: 20080606

REACTIONS (2)
  - PNEUMONIA [None]
  - PULMONARY MYCOSIS [None]
